FAERS Safety Report 12660467 (Version 1)
Quarter: 2016Q3

REPORT INFORMATION
  Report Type: Spontaneous
  Country: US (occurrence: US)
  Receive Date: 20160817
  Receipt Date: 20160817
  Transmission Date: 20161109
  Serious: Yes (Death)
  Sender: FDA-Public Use
  Company Number: US-BAYER-2016-158551

PATIENT
  Age: 89 Year
  Sex: Male

DRUGS (1)
  1. BAYER GENUINE ASPIRIN [Suspect]
     Active Substance: ASPIRIN
     Indication: PROPHYLAXIS
     Dosage: UNK

REACTIONS (2)
  - Product use issue [None]
  - Death [Fatal]

NARRATIVE: CASE EVENT DATE: 20150607
